FAERS Safety Report 7962634-7 (Version None)
Quarter: 2011Q4

REPORT INFORMATION
  Report Type: 
  Country: None (occurrence: None)
  Receive Date: 20111207
  Receipt Date: 20111130
  Transmission Date: 20120403
  Serious: Yes (Death)
  Sender: FDA-Public Use
  Company Number: US-CELGENEUS-163-21880-11103030

PATIENT
  Sex: Female

DRUGS (9)
  1. CYTOXAN [Concomitant]
     Route: 065
     Dates: start: 20110815, end: 20110907
  2. VELCADE [Concomitant]
     Route: 065
     Dates: start: 20110301, end: 20110322
  3. ASPIRIN [Concomitant]
     Route: 065
     Dates: start: 20110815, end: 20110907
  4. RITUXAN [Concomitant]
     Route: 065
     Dates: start: 20110427, end: 20110704
  5. ETOPOSIDE [Concomitant]
     Route: 065
     Dates: start: 20110815, end: 20110907
  6. MESNA [Concomitant]
     Route: 065
     Dates: start: 20110427, end: 20110704
  7. REVLIMID [Suspect]
     Dosage: 10 MILLIGRAM
     Route: 048
     Dates: start: 20110921, end: 20111001
  8. CARBO [Concomitant]
     Route: 065
     Dates: start: 20110427, end: 20110704
  9. INTERFERON [Concomitant]
     Route: 065
     Dates: start: 20110729, end: 20110810

REACTIONS (1)
  - DIFFUSE LARGE B-CELL LYMPHOMA [None]
